FAERS Safety Report 6474632-3 (Version None)
Quarter: 2009Q4

REPORT INFORMATION
  Report Type: 
  Country: None (occurrence: None)
  Receive Date: 20091204
  Receipt Date: 20090415
  Transmission Date: 20100525
  Serious: Yes (Other)
  Sender: FDA-Public Use
  Company Number: ES-ELI_LILLY_AND_COMPANY-ES200901004823

PATIENT
  Age: 8 Year
  Sex: Male

DRUGS (4)
  1. STRATTERA [Suspect]
     Indication: ATTENTION DEFICIT/HYPERACTIVITY DISORDER
     Dosage: 25 MG, DAILY (1/D)
     Route: 048
     Dates: start: 20081001, end: 20090101
  2. CONCERTA [Concomitant]
     Dosage: 36 MG, UNKNOWN
     Route: 065
  3. CONCERTA [Concomitant]
     Dosage: 18 MG, UNKNOWN
     Route: 065
     Dates: start: 20081001
  4. RUBIFEN [Concomitant]
     Dosage: 10 MG, EACH MORNING
     Route: 065
     Dates: start: 20081001

REACTIONS (6)
  - BLOOD PRESSURE INCREASED [None]
  - DYSPHAGIA [None]
  - FLUSHING [None]
  - NERVOUSNESS [None]
  - PALPITATIONS [None]
  - TACHYCARDIA [None]
